FAERS Safety Report 5213409-3 (Version None)
Quarter: 2007Q1

REPORT INFORMATION
  Report Type: 
  Country: None (occurrence: None)
  Receive Date: 20070116
  Receipt Date: 20070109
  Transmission Date: 20070707
  Serious: Yes (Life-Threatening, Hospitalization, Other)
  Sender: FDA-Public Use
  Company Number: HQWYE766211DEC06

PATIENT
  Age: 39 Year
  Sex: Female

DRUGS (2)
  1. TYGACIL [Suspect]
     Indication: ABDOMINAL INFECTION
     Dosage: 100 MG 1X PER 1 TOT
     Route: 042
     Dates: start: 20061208, end: 20061208
  2. TYGACIL [Suspect]
     Indication: PROPHYLAXIS
     Dosage: 100 MG 1X PER 1 TOT
     Route: 042
     Dates: start: 20061208, end: 20061208

REACTIONS (3)
  - ACUTE PULMONARY OEDEMA [None]
  - ANAPHYLACTIC SHOCK [None]
  - BRONCHOSPASM [None]
